FAERS Safety Report 7553611-9 (Version None)
Quarter: 2011Q2

REPORT INFORMATION
  Report Type: 
  Country: None (occurrence: None)
  Receive Date: 20110617
  Receipt Date: 20110606
  Transmission Date: 20111010
  Serious: Yes (Hospitalization)
  Sender: FDA-Public Use
  Company Number: JP-JNJFOC-20110512805

PATIENT
  Age: 32 Year
  Sex: Male

DRUGS (7)
  1. LODOPIN [Suspect]
     Indication: SCHIZOPHRENIA
     Route: 048
  2. CARBAMAZEPINE [Suspect]
     Indication: SCHIZOPHRENIA
     Route: 048
  3. RISPERDAL CONSTA [Suspect]
     Indication: SCHIZOPHRENIA
     Route: 030
     Dates: start: 20100804
  4. HALOPERIDOL [Suspect]
     Indication: SCHIZOPHRENIA
     Route: 048
     Dates: start: 20050711
  5. HIRNAMINE [Suspect]
     Indication: SCHIZOPHRENIA
     Route: 048
     Dates: start: 20051110
  6. LONASEN [Suspect]
     Indication: SCHIZOPHRENIA
     Route: 048
     Dates: start: 20110111
  7. VALPROATE SODIUM [Suspect]
     Indication: SCHIZOPHRENIA
     Route: 048
     Dates: start: 20070720

REACTIONS (3)
  - AGGRESSION [None]
  - AGITATION [None]
  - RESTLESSNESS [None]
